FAERS Safety Report 9132523 (Version 1)
Quarter: 2013Q1

REPORT INFORMATION
  Report Type: Spontaneous
  Country: BE (occurrence: BE)
  Receive Date: 20130301
  Receipt Date: 20130301
  Transmission Date: 20140127
  Serious: Yes (Other)
  Sender: FDA-Public Use
  Company Number: BE-GLAXOSMITHKLINE-B0871344A

PATIENT
  Sex: Male

DRUGS (3)
  1. TROBALT [Suspect]
     Indication: EPILEPSY
     Route: 065
  2. KEPPRA [Concomitant]
     Dosage: 3000MG PER DAY
  3. VIMPAT [Concomitant]
     Dosage: 400MG PER DAY

REACTIONS (2)
  - Cognitive disorder [Recovered/Resolved]
  - Aphasia [Recovered/Resolved]
